FAERS Safety Report 18249493 (Version 3)
Quarter: 2020Q4

REPORT INFORMATION
  Report Type: Spontaneous
  Country: US (occurrence: US)
  Receive Date: 20200909
  Receipt Date: 20201210
  Transmission Date: 20210113
  Serious: No
  Sender: FDA-Public Use
  Company Number: US-PFIZER INC-2020345470

PATIENT
  Age: 67 Year
  Sex: Female

DRUGS (5)
  1. EUCRISA [Suspect]
     Active Substance: CRISABOROLE
     Indication: ECZEMA
  2. EUCRISA [Suspect]
     Active Substance: CRISABOROLE
     Indication: ASTEATOSIS
  3. EUCRISA [Suspect]
     Active Substance: CRISABOROLE
     Indication: PRURITUS
  4. EUCRISA [Suspect]
     Active Substance: CRISABOROLE
     Indication: BLISTER
     Dosage: UNK
     Route: 061
  5. EUCRISA [Suspect]
     Active Substance: CRISABOROLE
     Indication: PERIVASCULAR DERMATITIS

REACTIONS (7)
  - Off label use [Unknown]
  - Rash [Not Recovered/Not Resolved]
  - Skin exfoliation [Unknown]
  - Product use in unapproved indication [Unknown]
  - Condition aggravated [Unknown]
  - Pruritus [Not Recovered/Not Resolved]
  - Therapeutic product effect incomplete [Unknown]
